FAERS Safety Report 13277072 (Version 1)
Quarter: 2017Q1

REPORT INFORMATION
  Report Type: Spontaneous
  Country: US (occurrence: US)
  Receive Date: 20170228
  Receipt Date: 20170228
  Transmission Date: 20170428
  Serious: Yes (Other)
  Sender: FDA-Public Use
  Company Number: None

PATIENT
  Sex: Male
  Weight: 120.2 kg

DRUGS (7)
  1. METFORMIN [Suspect]
     Active Substance: METFORMIN HYDROCHLORIDE
     Indication: BLOOD GLUCOSE INCREASED
     Dosage: 1000 PO, QD
     Route: 048
  2. ALLOPURINOL. [Concomitant]
     Active Substance: ALLOPURINOL
  3. SIMVASTATIN. [Suspect]
     Active Substance: SIMVASTATIN
     Indication: BLOOD CHOLESTEROL
     Dosage: QUANITY - 1 PILL, 2 PILL, 1 PILL - UNSURE IF THAT IS SUPPOSED TO MATCH LISTED STRENGTH OF 20MG, 1000, 50MG
     Route: 048
     Dates: start: 20160524, end: 20160721
  4. SIMVASTATIN. [Suspect]
     Active Substance: SIMVASTATIN
     Indication: BLOOD POTASSIUM
     Dosage: QUANITY - 1 PILL, 2 PILL, 1 PILL - UNSURE IF THAT IS SUPPOSED TO MATCH LISTED STRENGTH OF 20MG, 1000, 50MG
     Route: 048
     Dates: start: 20160524, end: 20160721
  5. JANUVIA [Suspect]
     Active Substance: SITAGLIPTIN PHOSPHATE
     Indication: BLOOD POTASSIUM
     Dosage: PILL
     Route: 048
  6. TYLENOL [Concomitant]
     Active Substance: ACETAMINOPHEN
  7. PRED [Concomitant]
     Active Substance: PREDNISONE

REACTIONS (5)
  - Vomiting [None]
  - Malaise [None]
  - Neck pain [None]
  - Drug ineffective [None]
  - Back pain [None]
